FAERS Safety Report 8230320-4 (Version None)
Quarter: 2012Q1

REPORT INFORMATION
  Report Type: 
  Country: None (occurrence: None)
  Receive Date: 20120323
  Receipt Date: 20120319
  Transmission Date: 20120608
  Serious: No
  Sender: FDA-Public Use
  Company Number: US-PFIZER INC-2012071133

PATIENT
  Sex: Female

DRUGS (2)
  1. PROTONIX [Suspect]
     Dosage: UNK
  2. FAMOTIDINE [Suspect]
     Dosage: UNK

REACTIONS (2)
  - VULVOVAGINAL PAIN [None]
  - FLATULENCE [None]
